FAERS Safety Report 11463515 (Version 1)
Quarter: 2015Q3

REPORT INFORMATION
  Report Type: Spontaneous
  Country: US (occurrence: US)
  Receive Date: 20150831
  Receipt Date: 20150831
  Transmission Date: 20151125
  Serious: No
  Sender: FDA-Public Use
  Company Number: US-ELI_LILLY_AND_COMPANY-US201103006653

PATIENT
  Sex: Female

DRUGS (3)
  1. PEPTO-BISMOL [Concomitant]
     Active Substance: BISMUTH SUBSALICYLATE\CALCIUM CARBONATE
     Dosage: UNK
     Dates: start: 20110317
  2. CYMBALTA [Suspect]
     Active Substance: DULOXETINE HYDROCHLORIDE
     Indication: NEURALGIA
     Dosage: 30 MG, QD
     Dates: start: 20110317
  3. PSEUDOEPHEDRINE [Concomitant]
     Active Substance: PSEUDOEPHEDRINE
     Indication: SINUSITIS

REACTIONS (3)
  - Off label use [Unknown]
  - Sedation [Unknown]
  - Nausea [Unknown]

NARRATIVE: CASE EVENT DATE: 20110317
